FAERS Safety Report 4314416-5 (Version None)
Quarter: 2004Q1

REPORT INFORMATION
  Report Type: 
  Country: None (occurrence: None)
  Receive Date: 20040309
  Receipt Date: 20040227
  Transmission Date: 20041129
  Serious: Yes (Other)
  Sender: FDA-Public Use
  Company Number: JP-GLAXOSMITHKLINE-B0325119A

PATIENT
  Age: 22 Year
  Sex: Female

DRUGS (1)
  1. ZOVIRAX [Suspect]
     Indication: ENCEPHALITIS HERPES
     Dosage: 250MG TWICE PER DAY
     Route: 042
     Dates: start: 20040120, end: 20040123

REACTIONS (1)
  - BLOOD CREATINE PHOSPHOKINASE INCREASED [None]
